FAERS Safety Report 5037321-8 (Version None)
Quarter: 2006Q2

REPORT INFORMATION
  Report Type: 
  Country: None (occurrence: None)
  Receive Date: 20060608
  Receipt Date: 20050510
  Transmission Date: 20061013
  Serious: No
  Sender: FDA-Public Use
  Company Number: APP200500251

PATIENT
  Sex: Female

DRUGS (1)
  1. PROTAMINE SULFATE [Suspect]
     Indication: HEPARIN NEUTRALISATION THERAPY
     Dosage: SEE IMAGE
     Route: 042
     Dates: start: 20050506, end: 20050506

REACTIONS (1)
  - HYPOTENSION [None]
